FAERS Safety Report 9865846 (Version 2)
Quarter: 2014Q1

REPORT INFORMATION
  Report Type: Spontaneous
  Country: US (occurrence: US)
  Receive Date: 20140203
  Receipt Date: 20140203
  Transmission Date: 20141002
  Serious: No
  Sender: FDA-Public Use
  Company Number: US-ALLERGAN-1311966US

PATIENT
  Age: 73 Year
  Sex: Male

DRUGS (5)
  1. RESTASIS [Suspect]
     Indication: DRY EYE
     Dosage: 2 GTT, BID
     Route: 047
     Dates: start: 201305
  2. FENTANYL PATCH [Concomitant]
     Indication: BACK PAIN
  3. REFRESH TEARS [Concomitant]
     Indication: DRY EYE
  4. GENERIC CVS [Concomitant]
     Indication: DRY EYE
  5. JOHNSON AND JOHNSON SHAMPOO [Concomitant]
     Indication: REMOVAL OF INERT MATTER FROM SKIN OR SUBCUTANEOUS TISSUE

REACTIONS (3)
  - Lacrimation increased [Not Recovered/Not Resolved]
  - Scleral hyperaemia [Not Recovered/Not Resolved]
  - Lacrimation increased [Not Recovered/Not Resolved]
